FAERS Safety Report 12300939 (Version 1)
Quarter: 2016Q2

REPORT INFORMATION
  Report Type: Spontaneous
  Country: US (occurrence: US)
  Receive Date: 20160425
  Receipt Date: 20160425
  Transmission Date: 20160815
  Serious: No
  Sender: FDA-Public Use
  Company Number: US-009507513-1604USA014385

PATIENT
  Age: 55 Year
  Sex: Male

DRUGS (2)
  1. ASMANEX [Suspect]
     Active Substance: MOMETASONE FUROATE
     Indication: ASTHMA
     Dosage: 1 INHALATION, ONCE A DAY
     Route: 055
     Dates: start: 20160415
  2. PROVENTIL [Concomitant]
     Active Substance: ALBUTEROL
     Dosage: UNK

REACTIONS (4)
  - Product quality issue [None]
  - Product container issue [Unknown]
  - Dyspnoea [Not Recovered/Not Resolved]
  - Device malfunction [None]

NARRATIVE: CASE EVENT DATE: 20160415
